FAERS Safety Report 9413721 (Version 1)
Quarter: 2013Q3

REPORT INFORMATION
  Report Type: Spontaneous
  Country: US (occurrence: US)
  Receive Date: 20130722
  Receipt Date: 20130722
  Transmission Date: 20140515
  Serious: No
  Sender: FDA-Public Use
  Company Number: US-009507513-1307USA011088

PATIENT
  Age: 24 Year
  Sex: Female
  Weight: 110.2 kg

DRUGS (1)
  1. NEXPLANON [Suspect]
     Indication: METRORRHAGIA
     Dosage: 1 ROD/THREE YEARS
     Route: 059
     Dates: start: 20120830, end: 20130716

REACTIONS (2)
  - Menorrhagia [Recovering/Resolving]
  - Device kink [Unknown]
